FAERS Safety Report 13621955 (Version 1)
Quarter: 2017Q2

REPORT INFORMATION
  Report Type: Spontaneous
  Country: US (occurrence: US)
  Receive Date: 20170607
  Receipt Date: 20170607
  Transmission Date: 20170830
  Serious: No
  Sender: FDA-Public Use
  Company Number: US-ROCHE-1863409

PATIENT
  Sex: Female

DRUGS (1)
  1. XELODA [Suspect]
     Active Substance: CAPECITABINE
     Indication: COLON CANCER
     Dosage: TWICE A DAY DAYS 1-14
     Route: 048
     Dates: start: 20160907

REACTIONS (4)
  - Sinus disorder [Unknown]
  - Muscular weakness [Unknown]
  - Diarrhoea [Unknown]
  - Paraesthesia [Unknown]
